FAERS Safety Report 15823348 (Version 6)
Quarter: 2023Q1

REPORT INFORMATION
  Report Type: Spontaneous
  Country: US (occurrence: US)
  Receive Date: 20190114
  Receipt Date: 20230302
  Transmission Date: 20230418
  Serious: Yes (Hospitalization)
  Sender: FDA-Public Use
  Company Number: US-PFIZER INC-2019016047

PATIENT
  Age: 78 Year
  Sex: Female

DRUGS (1)
  1. XELJANZ [Suspect]
     Active Substance: TOFACITINIB CITRATE
     Dosage: 5 MG

REACTIONS (6)
  - COVID-19 [Recovering/Resolving]
  - Nasopharyngitis [Recovered/Resolved]
  - Peripheral swelling [Unknown]
  - Hand deformity [Unknown]
  - Illness [Unknown]
  - Intentional product use issue [Unknown]
